FAERS Safety Report 10563718 (Version 1)
Quarter: 2014Q4

REPORT INFORMATION
  Report Type: Spontaneous
  Country: US (occurrence: US)
  Receive Date: 20141104
  Receipt Date: 20141104
  Transmission Date: 20150529
  Serious: No
  Sender: FDA-Public Use
  Company Number: US-GLAXOSMITHKLINE-US2014GSK015942

PATIENT
  Sex: Female
  Weight: 63 kg

DRUGS (3)
  1. NARATRIPTAN [Suspect]
     Active Substance: NARATRIPTAN HYDROCHLORIDE
     Indication: MIGRAINE
     Dosage: 2.5 MG, U
     Dates: start: 20140712, end: 201408
  2. DRONEDARONE [Concomitant]
     Active Substance: DRONEDARONE
  3. IMITREX [Suspect]
     Active Substance: SUMATRIPTAN\SUMATRIPTAN SUCCINATE
     Indication: MIGRAINE
     Dosage: UNK, SINGLE
     Dates: start: 200705

REACTIONS (1)
  - Drug ineffective [Unknown]
